FAERS Safety Report 6231015-9 (Version None)
Quarter: 2009Q2

REPORT INFORMATION
  Report Type: 
  Country: None (occurrence: None)
  Receive Date: 20090616
  Receipt Date: 20090607
  Transmission Date: 20091009
  Serious: Yes (Hospitalization)
  Sender: FDA-Public Use
  Company Number: TW-PFIZER INC-2009225032

PATIENT
  Age: 57 Year

DRUGS (9)
  1. SUNITINIB MALATE [Suspect]
     Indication: METASTATIC RENAL CELL CARCINOMA
     Dosage: 25 MG, 1X/DAY
     Dates: start: 20060119
  2. PREDNISOLONE [Concomitant]
     Dosage: UNK
     Route: 048
     Dates: start: 19991015
  3. FLUDROCORTISONE [Concomitant]
     Dosage: UNK
     Route: 048
     Dates: start: 20020320
  4. IRBESARTAN [Concomitant]
     Dosage: UNK
     Route: 048
     Dates: start: 20090507
  5. LEVOTHYROXINE SODIUM [Concomitant]
     Dosage: UNK
     Route: 048
     Dates: start: 20070226
  6. DOXAZOSIN MESILATE [Concomitant]
     Dosage: UNK
     Route: 048
     Dates: start: 20080204
  7. AMOXICILLIN + CLAVULANATE POTASSIUM [Concomitant]
     Route: 048
     Dates: start: 20090602, end: 20090606
  8. AMBROXOL HYDROCHLORIDE [Concomitant]
     Dosage: UNK
     Route: 048
     Dates: start: 20090604
  9. BENZBROMARONE [Concomitant]
     Dosage: UNK
     Route: 048
     Dates: start: 20080125

REACTIONS (1)
  - CELLULITIS [None]
